FAERS Safety Report 4359566-2 (Version None)
Quarter: 2004Q2

REPORT INFORMATION
  Report Type: 
  Country: None (occurrence: None)
  Receive Date: 20040513
  Receipt Date: 20040430
  Transmission Date: 20050107
  Serious: Yes (Other)
  Sender: FDA-Public Use
  Company Number: 2004029628

PATIENT
  Sex: Male

DRUGS (1)
  1. ZOLOFT [Suspect]
     Indication: OBSESSIVE-COMPULSIVE DISORDER
     Dosage: ORAL
     Route: 048

REACTIONS (12)
  - AGITATION [None]
  - FEELING ABNORMAL [None]
  - HEADACHE [None]
  - LOWER LIMB FRACTURE [None]
  - MIGRAINE [None]
  - MYDRIASIS [None]
  - NAUSEA [None]
  - PARAESTHESIA [None]
  - PSYCHOMOTOR HYPERACTIVITY [None]
  - SOMNOLENCE [None]
  - STAPHYLOCOCCAL INFECTION [None]
  - TREMOR [None]
